FAERS Safety Report 8983133 (Version 1)
Quarter: 2012Q4

REPORT INFORMATION
  Report Type: 
  Country: DE (occurrence: DE)
  Receive Date: 20121224
  Receipt Date: 20121224
  Transmission Date: 20130627
  Serious: Yes (Other)
  Sender: FDA-Public Use
  Company Number: DE-009507513-1212DEU007886

PATIENT
  Age: 45 Year
  Sex: Male

DRUGS (2)
  1. VICTRELIS [Suspect]
     Indication: HEPATITIS C
     Dosage: 800 mg, tid
     Route: 048
     Dates: start: 201110, end: 201201
  2. RIBAVIRIN [Suspect]

REACTIONS (1)
  - Pancytopenia [Recovered/Resolved]
